FAERS Safety Report 16353437 (Version 1)
Quarter: 2019Q2

REPORT INFORMATION
  Report Type: Spontaneous
  Country: US (occurrence: US)
  Receive Date: 20190524
  Receipt Date: 20190524
  Transmission Date: 20190711
  Serious: Yes (Death)
  Sender: FDA-Public Use
  Company Number: US-SLATE RUN PHARMACEUTICALS-SLTR-AE-19-27

PATIENT
  Age: 11 Year

DRUGS (1)
  1. HYDROCODONE/CHLORPHENIRAMINE 10MG/5M KREMERL [Suspect]
     Active Substance: CHLORPHENIRAMINE HYDROCHLORIDE\HYDROCODONE
     Indication: COUGH

REACTIONS (2)
  - Drug interaction [Fatal]
  - Arrhythmia [Fatal]
